FAERS Safety Report 8599842 (Version 3)
Quarter: 2012Q4

REPORT INFORMATION
  Report Type: 
  Country: US (occurrence: US)
  Receive Date: 20120605
  Receipt Date: 20120906
  Transmission Date: 20130627
  Serious: Yes (Other)
  Sender: FDA-Public Use
  Company Number: US-ASTRAZENECA-2012SE33259

PATIENT
  Age: 49 Year
  Sex: Female
  Weight: 133.8 kg

DRUGS (10)
  1. SEROQUEL [Suspect]
     Indication: MENTAL DISORDER
     Route: 048
     Dates: start: 2008
  2. SEROQUEL [Suspect]
     Indication: BIPOLAR DISORDER
     Route: 048
     Dates: start: 2008
  3. JANUMET [Concomitant]
     Indication: DIABETES MELLITUS
     Dosage: 50/1000
  4. GLIMEPIRIDE [Concomitant]
     Indication: DIABETES MELLITUS
  5. NATEGLINIDE [Concomitant]
     Indication: DIABETES MELLITUS
  6. RESTASIS [Concomitant]
     Indication: DRY EYE
  7. CYMBALTA [Concomitant]
     Indication: FIBROMYALGIA
  8. NEURONTIN [Concomitant]
     Indication: FIBROMYALGIA
  9. TRAMADOL [Concomitant]
     Indication: PAIN
  10. SYNTHROID [Concomitant]
     Indication: HYPOTHYROIDISM

REACTIONS (7)
  - Impaired healing [Unknown]
  - Insomnia [Recovered/Resolved]
  - Hypothyroidism [Unknown]
  - Memory impairment [Recovered/Resolved]
  - Feeling abnormal [Unknown]
  - Blood glucose increased [Unknown]
  - Drug dose omission [Unknown]
